FAERS Safety Report 15009116 (Version 2)
Quarter: 2018Q2

REPORT INFORMATION
  Report Type: Report from Study
  Country: JP (occurrence: JP)
  Receive Date: 20180614
  Receipt Date: 20180622
  Transmission Date: 20180711
  Serious: Yes (Hospitalization)
  Sender: FDA-Public Use
  Company Number: JP-ROCHE-2137967

PATIENT
  Age: 54 Year
  Sex: Female
  Weight: 61 kg

DRUGS (28)
  1. LEXAPRO [Concomitant]
     Active Substance: ESCITALOPRAM OXALATE
     Indication: INSOMNIA
     Route: 065
     Dates: start: 201511
  2. ALLEGRA [Concomitant]
     Active Substance: FEXOFENADINE HYDROCHLORIDE
     Indication: RASH
     Route: 065
     Dates: start: 20170210
  3. PRIMPERAN [Concomitant]
     Active Substance: METOCLOPRAMIDE HYDROCHLORIDE
     Indication: NAUSEA
     Route: 065
     Dates: start: 20171021
  4. NAB-PACLITAXEL [Suspect]
     Active Substance: PACLITAXEL
     Indication: BREAST CANCER METASTATIC
     Dosage: DATE OF MOST RECENT DOSE (100 MG/M2) OF NAB-PACLITAXEL PRIOR TO EVENT ONSET: 17/MAY/2018?ON DAY 1, 8
     Route: 042
     Dates: start: 20170206
  5. CINAL [Concomitant]
     Active Substance: ASCORBIC ACID\CALCIUM PANTOTHENATE
     Indication: CHLOASMA
     Route: 065
     Dates: start: 20170522
  6. SEKICODE [Concomitant]
     Indication: COUGH
     Route: 065
     Dates: start: 20170926
  7. CEFCAPENE PIVOXIL HYDROCHLORIDE HYDRATE [Concomitant]
     Active Substance: CEFCAPENE PIVOXIL HYDROCHLORIDE HYDRATE
     Indication: LYMPHADENITIS
     Route: 065
     Dates: start: 20180606, end: 20180611
  8. SENNOSIDE [Concomitant]
     Active Substance: SENNOSIDES
     Indication: CONSTIPATION
     Route: 065
     Dates: start: 201511
  9. ANTEBATE [Concomitant]
     Active Substance: BETAMETHASONE DIPROPIONATE
     Indication: RASH
     Route: 065
     Dates: start: 20170307
  10. SPIRONOLACTONE. [Concomitant]
     Active Substance: SPIRONOLACTONE
     Indication: OEDEMA
     Route: 065
     Dates: start: 20170814
  11. TAKECAB [Concomitant]
     Active Substance: VONOPRAZAN FUMURATE
     Indication: GASTRITIS
     Route: 065
     Dates: start: 20151208
  12. MYONAL (JAPAN) [Concomitant]
     Active Substance: EPERISONE HYDROCHLORIDE
     Indication: INTERCOSTAL NEURALGIA
     Route: 065
     Dates: start: 201606
  13. THYRADIN [Concomitant]
     Active Substance: LEVOTHYROXINE
     Indication: HYPOTHYROIDISM
     Route: 065
     Dates: start: 20170410
  14. MYSLEE [Concomitant]
     Active Substance: ZOLPIDEM TARTRATE
     Indication: INSOMNIA
     Route: 065
     Dates: start: 20171024
  15. OXYCODONE [Concomitant]
     Active Substance: OXYCODONE
     Indication: OEDEMA
     Route: 065
     Dates: start: 20180411
  16. DIPHENHYDRAMINE. [Concomitant]
     Active Substance: DIPHENHYDRAMINE
     Indication: RASH
     Route: 065
     Dates: start: 20180615
  17. ROHYPNOL [Concomitant]
     Active Substance: FLUNITRAZEPAM
     Indication: INSOMNIA
     Route: 065
     Dates: start: 201511
  18. METHYCOBAL [Concomitant]
     Active Substance: METHYLCOBALAMIN
     Indication: INTERCOSTAL NEURALGIA
     Route: 065
     Dates: start: 201606
  19. CELECOX [Concomitant]
     Active Substance: CELECOXIB
     Indication: PERIPHERAL SENSORY NEUROPATHY
     Route: 065
     Dates: start: 20170411
  20. LASIX [Concomitant]
     Active Substance: FUROSEMIDE
     Indication: OEDEMA
     Route: 065
     Dates: start: 20170522
  21. OXINORM (JAPAN) [Concomitant]
     Active Substance: OXYCODONE HYDROCHLORIDE
     Indication: OEDEMA
     Route: 065
     Dates: start: 20180327
  22. MOHRUS TAPE [Concomitant]
     Active Substance: KETOPROFEN
     Indication: PERIPHERAL SENSORY NEUROPATHY
     Route: 065
     Dates: start: 20170404
  23. POSTERISAN FORTE [Concomitant]
     Active Substance: LIDOCAINE
     Indication: PROCTALGIA
     Route: 065
     Dates: start: 20170418
  24. JUVELA (JAPAN) [Concomitant]
     Indication: INTERCOSTAL NEURALGIA
     Route: 065
     Dates: start: 201606
  25. HIRUDOID (JAPAN) [Concomitant]
     Indication: RASH
     Route: 065
     Dates: start: 20170307
  26. DIQUAS [Concomitant]
     Active Substance: DIQUAFOSOL TETRASODIUM
     Route: 065
     Dates: start: 20170814
  27. MAGNESIUM OXIDE. [Concomitant]
     Active Substance: MAGNESIUM OXIDE
     Indication: CONSTIPATION
     Route: 065
     Dates: start: 20171030
  28. ATEZOLIZUMAB. [Suspect]
     Active Substance: ATEZOLIZUMAB
     Indication: BREAST CANCER METASTATIC
     Dosage: DATE OF MOST RECENT DOSE OF BLINDED ATEZOLIZUMAB PRIOR TO EVENT ONSET: 09/MAY/2018
     Route: 042
     Dates: start: 20170206

REACTIONS (1)
  - Polyarthritis [Recovering/Resolving]

NARRATIVE: CASE EVENT DATE: 20180602
